FAERS Safety Report 5063895-7 (Version None)
Quarter: 2006Q3

REPORT INFORMATION
  Report Type: 
  Country: None (occurrence: None)
  Receive Date: 20060703
  Receipt Date: 20060330
  Transmission Date: 20061208
  Serious: No
  Sender: FDA-Public Use
  Company Number: 2006S1002906

PATIENT
  Age: 45 Year
  Sex: Male
  Weight: 108.8633 kg

DRUGS (6)
  1. CLOZAPINE [Suspect]
     Dosage: 200 MG ; HS; ORAL
     Route: 048
     Dates: end: 20060320
  2. CEPHALEXIN [Suspect]
     Indication: INFECTION
     Dosage: 500 MG; TID; ORAL
     Route: 048
     Dates: start: 20060313, end: 20060320
  3. METFORMIN [Concomitant]
  4. ROSIGLITAZONE MALEATE [Concomitant]
  5. LOXAPINE [Concomitant]
  6. AMITRIPTYLINE HYDROCHLORIDE [Concomitant]

REACTIONS (2)
  - GRANULOCYTOPENIA [None]
  - LEUKOPENIA [None]
